FAERS Safety Report 12601524 (Version 1)
Quarter: 2016Q3

REPORT INFORMATION
  Report Type: Spontaneous
  Country: US (occurrence: None)
  Receive Date: 20160727
  Receipt Date: 20160727
  Transmission Date: 20161109
  Serious: No
  Sender: FDA-Public Use
  Company Number: None

PATIENT
  Sex: Female

DRUGS (1)
  1. INVOKANA [Suspect]
     Active Substance: CANAGLIFLOZIN

REACTIONS (6)
  - Weight decreased [None]
  - Nervousness [None]
  - Diarrhoea [None]
  - Gastric disorder [None]
  - Dry mouth [None]
  - Tremor [None]
